FAERS Safety Report 6980498-5 (Version None)
Quarter: 2010Q3

REPORT INFORMATION
  Report Type: 
  Country: None (occurrence: None)
  Receive Date: 20100914
  Receipt Date: 20100901
  Transmission Date: 20110219
  Serious: Yes (Other)
  Sender: FDA-Public Use
  Company Number: PHHY2010JP58044

PATIENT

DRUGS (4)
  1. TEGRETOL [Suspect]
     Indication: COMPLEX PARTIAL SEIZURES
     Dosage: 800 MG,UNK
  2. VALPROATE SODIUM [Concomitant]
     Dosage: 1200 MG,UNK
  3. CLONAZEPAM [Concomitant]
     Dosage: 1.5 MG,UNK
  4. PHENOBARBITAL [Concomitant]
     Dosage: 90 MG,UNK

REACTIONS (1)
  - PSYCHOTIC DISORDER [None]
